FAERS Safety Report 11457720 (Version 1)
Quarter: 2015Q3

REPORT INFORMATION
  Report Type: Spontaneous
  Country: US (occurrence: US)
  Receive Date: 20150904
  Receipt Date: 20150904
  Transmission Date: 20151125
  Serious: Yes (Other)
  Sender: FDA-Public Use
  Company Number: US-SUN PHARMACEUTICAL INDUSTRIES LTD-2015US-102159

PATIENT
  Age: 59 Year
  Sex: Female

DRUGS (1)
  1. BUPROPION. [Suspect]
     Active Substance: BUPROPION
     Indication: FATIGUE
     Dosage: 150 MG, BID
     Route: 065
     Dates: start: 201508, end: 201508

REACTIONS (4)
  - Product substitution issue [Unknown]
  - Drug ineffective [Unknown]
  - Depression [Recovered/Resolved]
  - Fatigue [None]

NARRATIVE: CASE EVENT DATE: 201508
